FAERS Safety Report 7502380-7 (Version None)
Quarter: 2011Q2

REPORT INFORMATION
  Report Type: 
  Country: None (occurrence: None)
  Receive Date: 20110525
  Receipt Date: 20110509
  Transmission Date: 20111010
  Serious: Yes (Other)
  Sender: FDA-Public Use
  Company Number: US-BAYER-201038938NA

PATIENT
  Sex: Female
  Weight: 81.633 kg

DRUGS (11)
  1. YASMIN [Suspect]
     Indication: CONTRACEPTION
     Route: 048
     Dates: start: 20051101
  2. DROSPIRENONE AND ETHINYL ESTRADIOL [Suspect]
     Dosage: 1 DF, QD
     Dates: start: 20040101, end: 20090101
  3. METRONIDAZOLE [Concomitant]
     Dosage: 500 MG, BID
  4. ZYRTEC [Concomitant]
     Dosage: UNK UNK, QD
  5. CYCLOBENZAPRINE [Concomitant]
     Dosage: 10 MG, QD
  6. YASMIN [Suspect]
     Indication: PREMENSTRUAL SYNDROME
     Dosage: 1 DF, QD
     Dates: start: 20040101, end: 20090101
  7. YASMIN [Suspect]
  8. IBUPROFEN [Concomitant]
     Dosage: 800 MG, TID
  9. HYDROCODONE BITARTRATE AND ACETAMINOPHEN [Concomitant]
     Dosage: 500 MG, PRN
  10. YAZ [Suspect]
     Dosage: 1 DF, QD
     Dates: start: 20040101, end: 20090101
  11. SINGULAIR [Concomitant]
     Dosage: 10 MG, QD

REACTIONS (2)
  - GALLBLADDER NON-FUNCTIONING [None]
  - CHOLELITHIASIS [None]
